FAERS Safety Report 8345759-6 (Version None)
Quarter: 2012Q2

REPORT INFORMATION
  Report Type: 
  Country: None (occurrence: None)
  Receive Date: 20120508
  Receipt Date: 20120425
  Transmission Date: 20120825
  Serious: Yes (Hospitalization, Other)
  Sender: FDA-Public Use
  Company Number: US-ELI_LILLY_AND_COMPANY-US201108004407

PATIENT
  Sex: Female

DRUGS (3)
  1. FORTEO [Suspect]
     Dosage: 20 UG, UNK
  2. FORTEO [Suspect]
     Indication: OSTEOPOROSIS
     Dosage: 20 UG, QD
     Dates: start: 20110501
  3. FORTEO [Suspect]
     Dosage: 20 UG, QD

REACTIONS (5)
  - HIATUS HERNIA [None]
  - ABDOMINAL HERNIA [None]
  - PAIN [None]
  - MENTAL IMPAIRMENT [None]
  - INJECTION SITE HAEMATOMA [None]
